FAERS Safety Report 24423404 (Version 2)
Quarter: 2024Q4

REPORT INFORMATION
  Report Type: Report from Study
  Country: US (occurrence: US)
  Receive Date: 20241010
  Receipt Date: 20241017
  Transmission Date: 20250115
  Serious: Yes (Other)
  Sender: ABBVIE
  Company Number: US-ABBVIE-5955094

PATIENT
  Sex: Female
  Weight: 58.966 kg

DRUGS (4)
  1. SKYRIZI [Suspect]
     Active Substance: RISANKIZUMAB-RZAA
     Indication: Psoriasis
     Route: 058
     Dates: start: 20240627
  2. GABAPENTIN [Concomitant]
     Active Substance: GABAPENTIN
     Indication: Depression
     Dates: start: 2021
  3. PRISTIQ EXTENDED-RELEASE [Concomitant]
     Active Substance: DESVENLAFAXINE SUCCINATE
     Indication: Depression
     Route: 048
  4. ADDERALL [Concomitant]
     Active Substance: AMPHETAMINE ASPARTATE\AMPHETAMINE SULFATE\DEXTROAMPHETAMINE SACCHARATE\DEXTROAMPHETAMINE SULFATE
     Indication: Depression
     Dosage: TIME INTERVAL: 0.33333333 DAYS

REACTIONS (6)
  - Self-injurious ideation [Recovered/Resolved]
  - Mental impairment [Recovered/Resolved]
  - Crying [Unknown]
  - Back pain [Recovered/Resolved]
  - Feeling abnormal [Unknown]
  - Feeling of despair [Unknown]

NARRATIVE: CASE EVENT DATE: 20240101
